FAERS Safety Report 8344182-8 (Version None)
Quarter: 2012Q2

REPORT INFORMATION
  Report Type: 
  Country: None (occurrence: None)
  Receive Date: 20120508
  Receipt Date: 20110218
  Transmission Date: 20120825
  Serious: No
  Sender: FDA-Public Use
  Company Number: US-TEVA-2011000841

PATIENT
  Sex: Female

DRUGS (1)
  1. TREANDA [Suspect]
     Route: 061
     Dates: start: 20110218, end: 20110218

REACTIONS (2)
  - ERYTHEMA [None]
  - ACCIDENTAL EXPOSURE [None]
